FAERS Safety Report 5456355-2 (Version None)
Quarter: 2007Q3

REPORT INFORMATION
  Report Type: 
  Country: None (occurrence: None)
  Receive Date: 20070918
  Receipt Date: 20061116
  Transmission Date: 20080115
  Serious: No
  Sender: FDA-Public Use
  Company Number: US-ASTRAZENECA-2006UW24761

PATIENT
  Age: 45 Year
  Sex: Female

DRUGS (2)
  1. SEROQUEL [Suspect]
     Indication: PSYCHOTIC DISORDER
     Dosage: 200 MG IN AM AND 600MG PM
     Route: 048
  2. SEROQUEL [Suspect]
     Dosage: 200 MG IN AM AND 600MG PM
     Route: 048

REACTIONS (2)
  - HEADACHE [None]
  - VISION BLURRED [None]
